FAERS Safety Report 25533400 (Version 2)
Quarter: 2025Q3

REPORT INFORMATION
  Report Type: Spontaneous
  Country: US (occurrence: US)
  Receive Date: 20250709
  Receipt Date: 20250711
  Transmission Date: 20251021
  Serious: Yes (Other)
  Sender: BOEHRINGER INGELHEIM
  Company Number: US-Komodo Health-a23aa000008iAALAA2

PATIENT
  Age: 63 Year
  Sex: Female

DRUGS (1)
  1. JARDIANCE [Suspect]
     Active Substance: EMPAGLIFLOZIN
     Indication: Cardiac failure
     Dates: start: 202205, end: 202205

REACTIONS (2)
  - Prinzmetal angina [Unknown]
  - Constipation [Unknown]

NARRATIVE: CASE EVENT DATE: 20250630
